FAERS Safety Report 8993334 (Version 2)
Quarter: 2013Q1

REPORT INFORMATION
  Report Type: Spontaneous
  Country: SE (occurrence: SE)
  Receive Date: 20130102
  Receipt Date: 20130128
  Transmission Date: 20140127
  Serious: Yes (Hospitalization, Other)
  Sender: FDA-Public Use
  Company Number: SE-ASTRAZENECA-2012SE88906

PATIENT
  Age: 82 Year
  Sex: Male

DRUGS (5)
  1. SELOKEN ZOC [Suspect]
     Route: 048
  2. SPIRONOLACTONE ORION [Suspect]
  3. FURIX [Concomitant]
  4. DUROFERON [Concomitant]
  5. MADOPARK [Concomitant]
     Dates: start: 20120907

REACTIONS (3)
  - Blood creatinine increased [Recovered/Resolved]
  - Renal failure [Unknown]
  - Bradycardia [Unknown]
